FAERS Safety Report 8928590 (Version 1)
Quarter: 2012Q4

REPORT INFORMATION
  Report Type: Spontaneous
  Country: US (occurrence: None)
  Receive Date: 20121126
  Receipt Date: 20121126
  Transmission Date: 20130627
  Serious: Yes (Other)
  Sender: FDA-Public Use
  Company Number: None

PATIENT
  Age: 63 Year
  Sex: Female
  Weight: 101.61 kg

DRUGS (7)
  1. XELODA [Suspect]
     Indication: BREAST CANCER
     Dosage: 4 tablets bid po
     Route: 048
     Dates: start: 20120822, end: 20121029
  2. PINDOLOL [Concomitant]
  3. SPIRONOLACTONE [Concomitant]
  4. LEVOTHYROXINE [Concomitant]
  5. METFORMIN [Concomitant]
  6. NAPROXEN [Concomitant]
  7. TRAMADOL [Concomitant]

REACTIONS (8)
  - Diarrhoea [None]
  - Cardiac failure [None]
  - No therapeutic response [None]
  - Weight decreased [None]
  - Palmar-plantar erythrodysaesthesia syndrome [None]
  - Joint dislocation [None]
  - Tenderness [None]
  - Skin exfoliation [None]
